FAERS Safety Report 9495834 (Version 1)
Quarter: 2013Q3

REPORT INFORMATION
  Report Type: Spontaneous
  Country: IR (occurrence: IR)
  Receive Date: 20130903
  Receipt Date: 20130903
  Transmission Date: 20140515
  Serious: Yes (Hospitalization, Other)
  Sender: FDA-Public Use
  Company Number: IR-BAXTER-2013BAX034310

PATIENT
  Age: 22 Year
  Sex: Male

DRUGS (5)
  1. ENDOXAN 500MG VIAL [Suspect]
     Indication: DIFFUSE LARGE B-CELL LYMPHOMA
     Dosage: ON DAY 1
  2. RITUXIMAB [Suspect]
     Indication: DIFFUSE LARGE B-CELL LYMPHOMA
  3. VINCRISTINE [Suspect]
     Indication: DIFFUSE LARGE B-CELL LYMPHOMA
     Dosage: ON DAY 1
  4. DOXORUBICIN [Suspect]
     Indication: DIFFUSE LARGE B-CELL LYMPHOMA
     Dosage: ON DAY 1
  5. PREDNISOLONE [Suspect]
     Indication: DIFFUSE LARGE B-CELL LYMPHOMA
     Dosage: ON DAYS 2-5

REACTIONS (5)
  - Bronchopulmonary aspergillosis [Unknown]
  - Gastrointestinal toxicity [Unknown]
  - Grand mal convulsion [Unknown]
  - Loss of consciousness [Unknown]
  - Hyponatraemia [Recovered/Resolved]
